FAERS Safety Report 8346631-8 (Version None)
Quarter: 2012Q2

REPORT INFORMATION
  Report Type: 
  Country: None (occurrence: None)
  Receive Date: 20120509
  Receipt Date: 20120504
  Transmission Date: 20120825
  Serious: Yes (Other)
  Sender: FDA-Public Use
  Company Number: PHHY2011CA45857

PATIENT
  Sex: Female

DRUGS (2)
  1. SANDOSTATIN LAR [Suspect]
     Indication: ACROMEGALY
     Dosage: 20 MG, EVERY 4 WEEKS
     Route: 030
     Dates: start: 20080605
  2. SANDOSTATIN LAR [Suspect]
     Dosage: 30 MG, EVERY 4 WEEKS
     Route: 030
     Dates: start: 20111101

REACTIONS (9)
  - HYPOAESTHESIA [None]
  - FATIGUE [None]
  - HEPATIC PAIN [None]
  - ABDOMINAL PAIN UPPER [None]
  - AMENORRHOEA [None]
  - DECREASED APPETITE [None]
  - ABDOMINAL DISCOMFORT [None]
  - NAUSEA [None]
  - INJECTION SITE PAIN [None]
